FAERS Safety Report 7829145-0 (Version None)
Quarter: 2011Q4

REPORT INFORMATION
  Report Type: 
  Country: None (occurrence: None)
  Receive Date: 20111020
  Receipt Date: 20111007
  Transmission Date: 20120403
  Serious: Yes (Other)
  Sender: FDA-Public Use
  Company Number: PHHY2011RU92053

PATIENT
  Age: 68 Year
  Sex: Female

DRUGS (4)
  1. RASILEZ [Concomitant]
  2. ASPIRIN [Concomitant]
  3. DIOVAN HCT [Suspect]
     Dates: end: 20110701
  4. CLOPHELIN [Concomitant]

REACTIONS (1)
  - CONVULSION [None]
